FAERS Safety Report 4531591-8 (Version None)
Quarter: 2004Q4

REPORT INFORMATION
  Report Type: 
  Country: None (occurrence: None)
  Receive Date: 20041220
  Receipt Date: 20041209
  Transmission Date: 20050328
  Serious: Yes (Other)
  Sender: FDA-Public Use
  Company Number: PHBS2004BR16568

PATIENT
  Age: 47 Year
  Sex: Female
  Weight: 57 kg

DRUGS (3)
  1. SLOW-K [Suspect]
     Indication: ELECTROLYTE SUBSTITUTION THERAPY
     Dosage: 1 DF, TID
     Route: 048
     Dates: start: 20041208
  2. OLCADIL [Concomitant]
     Indication: INSOMNIA
     Dosage: 1 TAB/DAY
     Route: 048
  3. PROPRANOLOL HCL W/HYDROCHLOROTHIAZIDE [Concomitant]
     Indication: HYPERTENSION
     Dosage: 80 MG/DAY
     Route: 048

REACTIONS (2)
  - CONDITION AGGRAVATED [None]
  - LABYRINTHITIS [None]
